FAERS Safety Report 7790908-1 (Version None)
Quarter: 2011Q3

REPORT INFORMATION
  Report Type: 
  Country: None (occurrence: None)
  Receive Date: 20110930
  Receipt Date: 20100713
  Transmission Date: 20111222
  Serious: Yes (Hospitalization)
  Sender: FDA-Public Use
  Company Number: US-BAYER-201015477NA

PATIENT
  Age: 18 Year
  Sex: Female
  Weight: 102.4 kg

DRUGS (14)
  1. DILTIAZEM [Concomitant]
     Dosage: 180 MG, UNK
     Route: 048
  2. HYDROCODONE BITARTRATE AND ACETAMINOPHEN [Concomitant]
     Dosage: EVERY 4 +#8211; 6 HOURS
     Route: 048
  3. FLECAINIDE ACETATE [Concomitant]
     Dosage: 50 MG, QD
     Dates: start: 20080925
  4. VISTARIL [Concomitant]
     Dosage: 50 MG, UNK
     Route: 030
     Dates: start: 20081013
  5. LEXAPRO [Concomitant]
     Dosage: 10 MG, UNK
  6. PROCHLORPERAZINE [Concomitant]
     Dosage: 10 MG, EVERY 6-8 HRS
     Route: 048
  7. DILTIAZEM HCL [Concomitant]
     Dosage: 30 MG, BID
     Route: 048
  8. YASMIN [Suspect]
     Indication: CONTRACEPTION
     Dosage: UNK UNK, QD
     Route: 048
     Dates: start: 20060301, end: 20080101
  9. DROSPIRENONE AND ETHINYL ESTRADIOL [Suspect]
     Indication: CONTRACEPTION
     Dosage: UNK UNK, QD
     Route: 048
     Dates: start: 20080101, end: 20080101
  10. SOTALOL HCL [Concomitant]
     Dosage: 80 MG, UNK
     Route: 048
  11. ZANTAC [Concomitant]
     Indication: DYSPEPSIA
  12. CARTIA XT [Concomitant]
     Dosage: 120 MG, QD
     Route: 048
  13. FLUCONAZOLE [Concomitant]
     Dosage: 150 MG, TAKE 1 TAB NOW, REPEAT IN 10 DAYS
  14. TORADOL [Concomitant]
     Dosage: 600 MG, UNK
     Route: 030

REACTIONS (4)
  - CARDIAC MYXOMA [None]
  - ARRHYTHMIA [None]
  - CHEST PAIN [None]
  - SINUS TACHYCARDIA [None]
